FAERS Safety Report 6314460-2 (Version None)
Quarter: 2009Q3

REPORT INFORMATION
  Report Type: 
  Country: None (occurrence: None)
  Receive Date: 20090819
  Receipt Date: 20090719
  Transmission Date: 20100115
  Serious: No
  Sender: FDA-Public Use
  Company Number: US-BAYER-200927342NA

PATIENT
  Age: 81 Year
  Sex: Male
  Weight: 61 kg

DRUGS (1)
  1. CIPRO [Suspect]
     Indication: PROSTATOMEGALY
     Dosage: THERAPY SCHEDULED TO END ON 20-JUL-2009
     Dates: start: 20090713

REACTIONS (2)
  - DIZZINESS [None]
  - PAIN IN EXTREMITY [None]
